FAERS Safety Report 4426109-4 (Version None)
Quarter: 2004Q3

REPORT INFORMATION
  Report Type: 
  Country: None (occurrence: None)
  Receive Date: 20040811
  Receipt Date: 20040727
  Transmission Date: 20050211
  Serious: Yes (Hospitalization)
  Sender: FDA-Public Use
  Company Number: USA040773607

PATIENT
  Age: 65 Year
  Sex: Female
  Weight: 91 kg

DRUGS (1)
  1. FORTEO [Suspect]
     Indication: COMPRESSION FRACTURE
     Dates: start: 20040325

REACTIONS (4)
  - CONDITION AGGRAVATED [None]
  - HERNIA PAIN [None]
  - INCISIONAL HERNIA [None]
  - PHARMACEUTICAL PRODUCT COMPLAINT [None]
